FAERS Safety Report 11192776 (Version 2)
Quarter: 2015Q3

REPORT INFORMATION
  Report Type: Spontaneous
  Country: US (occurrence: US)
  Receive Date: 20150616
  Receipt Date: 20150713
  Transmission Date: 20151125
  Serious: Yes (Other)
  Sender: FDA-Public Use
  Company Number: US-BAYER-2015-345290

PATIENT
  Age: 18 Year
  Sex: Female

DRUGS (1)
  1. DR. SCHOLLS CLEAR AWAY WART REMOVER [Suspect]
     Active Substance: SALICYLIC ACID
     Indication: SKIN PAPILLOMA
     Dosage: UNK
     Dates: start: 201506

REACTIONS (2)
  - Purulent discharge [Unknown]
  - Skin haemorrhage [Not Recovered/Not Resolved]

NARRATIVE: CASE EVENT DATE: 201506
